FAERS Safety Report 6186913-1 (Version None)
Quarter: 2009Q2

REPORT INFORMATION
  Report Type: 
  Country: None (occurrence: None)
  Receive Date: 20090508
  Receipt Date: 20090508
  Transmission Date: 20091009
  Serious: No
  Sender: FDA-Public Use
  Company Number: None

PATIENT
  Age: 39 Year
  Sex: Female
  Weight: 56.6996 kg

DRUGS (2)
  1. PROPOFOL [Suspect]
     Indication: COLONOSCOPY
     Dosage: 400 MG IV DRIP
     Route: 041
  2. PROPOFOL [Suspect]
     Indication: SEDATIVE THERAPY
     Dosage: 400 MG IV DRIP
     Route: 041

REACTIONS (2)
  - POST PROCEDURAL COMPLICATION [None]
  - RESPIRATORY DISORDER [None]
